FAERS Safety Report 4487266-7 (Version None)
Quarter: 2004Q4

REPORT INFORMATION
  Report Type: 
  Country: None (occurrence: None)
  Receive Date: 20041022
  Receipt Date: 20041007
  Transmission Date: 20050328
  Serious: Yes (Death, Hospitalization)
  Sender: FDA-Public Use
  Company Number: AZAES200400060

PATIENT
  Age: 76 Year
  Sex: Male
  Weight: 51.6 kg

DRUGS (1)
  1. AZACITIDINE (AZACITIDINE) (INJECTION) [Suspect]
     Indication: MYELODYSPLASTIC SYNDROME
     Dosage: 75 MG/M2 DAILY X 7 DAYS, SUBCUTANEOUS
     Route: 058
     Dates: start: 20040729, end: 20040804

REACTIONS (5)
  - BODY TEMPERATURE INCREASED [None]
  - GENERAL PHYSICAL HEALTH DETERIORATION [None]
  - PANCYTOPENIA [None]
  - RESPIRATORY FAILURE [None]
  - RESPIRATORY TRACT INFECTION [None]
